FAERS Safety Report 9565987 (Version 3)
Quarter: 2013Q4

REPORT INFORMATION
  Report Type: Spontaneous
  Country: JP (occurrence: JP)
  Receive Date: 20130930
  Receipt Date: 20131007
  Transmission Date: 20140711
  Serious: Yes (Hospitalization)
  Sender: FDA-Public Use
  Company Number: JP-TAKEDA-2013TJP000858

PATIENT
  Age: 38 Year
  Sex: Male

DRUGS (4)
  1. LANSAP 800 [Suspect]
     Indication: HELICOBACTER INFECTION
     Dosage: 0.5 DF, BID
     Route: 048
     Dates: start: 20130824, end: 20130826
  2. FLUMARIN /00963302/ [Suspect]
     Indication: INFECTION
     Dosage: 1 G, BID
     Route: 041
     Dates: start: 20130807, end: 20130816
  3. OMEPRAZOL /00661202/ [Suspect]
     Indication: GASTRIC ULCER
     Dosage: 20 MG, BID
     Route: 041
     Dates: start: 20130807, end: 20130813
  4. PARIET [Suspect]
     Indication: GASTRIC ULCER
     Dosage: 10 MG, QD
     Route: 048
     Dates: start: 20130814, end: 20130823

REACTIONS (2)
  - Lymphocyte count increased [Recovering/Resolving]
  - Neutropenia [Recovering/Resolving]
